FAERS Safety Report 18946375 (Version 2)
Quarter: 2021Q2

REPORT INFORMATION
  Report Type: Spontaneous
  Country: JP (occurrence: JP)
  Receive Date: 20210226
  Receipt Date: 20210414
  Transmission Date: 20210717
  Serious: Yes (Hospitalization, Other)
  Sender: FDA-Public Use
  Company Number: JP-BAYER-2021-037397

PATIENT
  Age: 68 Year
  Sex: Male
  Weight: 53.6 kg

DRUGS (4)
  1. LOXOPROFEN NA [Concomitant]
     Active Substance: LOXOPROFEN SODIUM
     Indication: COLON CANCER RECURRENT
     Dosage: DAILY DOSE 180 MG
     Route: 048
     Dates: start: 20200424
  2. STIVARGA [Suspect]
     Active Substance: REGORAFENIB
     Indication: COLORECTAL CANCER RECURRENT
     Dosage: 3 TABLETS A DAY, 3 CONSECUTIVE WEEKS ADMINISTRATION 1 WEEK DRUG HOLIDAY
     Route: 048
     Dates: start: 20201225, end: 20210106
  3. STIVARGA [Suspect]
     Active Substance: REGORAFENIB
     Indication: COLORECTAL CANCER RECURRENT
     Dosage: 4 TABLETS A DAY, 3 CONSECUTIVE WEEKS ADMINISTRATION 1 WEEK DRUG HOLIDAY
     Route: 048
     Dates: start: 20201218, end: 20201224
  4. ZOPICLONE [Concomitant]
     Active Substance: ZOPICLONE
     Dosage: DAILY DOSE 7.5 MG
     Route: 048
     Dates: start: 20201105

REACTIONS (8)
  - Skin discolouration [Recovering/Resolving]
  - Colorectal cancer recurrent [None]
  - Proteinuria [Unknown]
  - Hypertension [Recovering/Resolving]
  - Blister [Recovering/Resolving]
  - Blister rupture [Recovering/Resolving]
  - Palmar-plantar erythrodysaesthesia syndrome [Recovering/Resolving]
  - Gait inability [Recovering/Resolving]

NARRATIVE: CASE EVENT DATE: 20201224
